FAERS Safety Report 10165989 (Version 4)
Quarter: 2014Q2

REPORT INFORMATION
  Report Type: Spontaneous
  Country: GB (occurrence: GB)
  Receive Date: 20140511
  Receipt Date: 20140623
  Transmission Date: 20141212
  Serious: Yes (Hospitalization, Other)
  Sender: FDA-Public Use
  Company Number: PHFR2014GB002302

PATIENT
  Age: 47 Year
  Sex: Female

DRUGS (5)
  1. CLOZARIL [Suspect]
     Indication: SCHIZOPHRENIA
     Dosage: 250 UKN
     Route: 048
     Dates: start: 20110724
  2. FLUOXETINE [Concomitant]
     Dosage: 20 UKN
     Route: 048
     Dates: start: 20110624
  3. SODIUM VALPROATE [Concomitant]
     Dosage: 500 UKN
     Route: 048
     Dates: start: 20110624
  4. HYOSCINE [Concomitant]
     Dosage: 5 MG, UNK
     Dates: start: 20110624
  5. NORETHISTERONE [Concomitant]
     Dosage: 1.5 UKN, UNK
     Route: 048
     Dates: start: 20110624

REACTIONS (4)
  - Infection [Recovered/Resolved]
  - White blood cell count increased [Recovered/Resolved]
  - Neutrophil count increased [Recovered/Resolved]
  - Diabetes mellitus [Not Recovered/Not Resolved]
